FAERS Safety Report 13677532 (Version 4)
Quarter: 2017Q4

REPORT INFORMATION
  Report Type: Spontaneous
  Country: JP (occurrence: JP)
  Receive Date: 20170622
  Receipt Date: 20171218
  Transmission Date: 20180320
  Serious: Yes (Life-Threatening, Hospitalization, Other)
  Sender: FDA-Public Use
  Company Number: JP-PFIZER INC-2017265510

PATIENT
  Age: 66 Year
  Sex: Male

DRUGS (5)
  1. BEVACIZUMAB. [Suspect]
     Active Substance: BEVACIZUMAB
     Indication: RECTAL CANCER
     Dosage: 7.5MG/KG,
  2. TS-1 [Suspect]
     Active Substance: GIMERACIL\OTERACIL\TEGAFUR
     Indication: RECTAL CANCER
     Dosage: 80 MG/M2/DAY, DAY 1 EVENING-DAY 15 MORNING, EVERY 3 WEEKS
  3. OXALIPLATIN. [Suspect]
     Active Substance: OXALIPLATIN
     Indication: RECTAL CANCER
     Dosage: 130 MG/M2, DAY 1,
  4. CAPECITABINE. [Suspect]
     Active Substance: CAPECITABINE
     Indication: RECTAL CANCER
     Dosage: 2,000 MG/M2/DAY, DAY 1 EVENING-DAY 15 MORNING, EVERY 3 WEEKS
  5. IRINOTECAN HCL [Suspect]
     Active Substance: IRINOTECAN HYDROCHLORIDE
     Indication: RECTAL CANCER
     Dosage: 150 MG/M2, DAY 1,

REACTIONS (3)
  - Pyrexia [Recovering/Resolving]
  - Necrotising fasciitis [Recovering/Resolving]
  - Proctalgia [Recovering/Resolving]
